FAERS Safety Report 6681467-5 (Version None)
Quarter: 2010Q2

REPORT INFORMATION
  Report Type: 
  Country: None (occurrence: None)
  Receive Date: 20100414
  Receipt Date: 20100403
  Transmission Date: 20101027
  Serious: Yes (Hospitalization)
  Sender: FDA-Public Use
  Company Number: NSADSS2001028795

PATIENT
  Age: 62 Year
  Sex: Female

DRUGS (3)
  1. LEVAQUIN [Suspect]
     Indication: PROPHYLAXIS
     Route: 048
  2. ZOVIRAX [Concomitant]
     Route: 065
  3. CHEMOTHERAPY [Concomitant]
     Indication: BREAST CANCER METASTATIC
     Route: 065

REACTIONS (1)
  - HYPONATRAEMIA [None]
